FAERS Safety Report 19140993 (Version 1)
Quarter: 2021Q2

REPORT INFORMATION
  Report Type: Spontaneous
  Country: FR (occurrence: FR)
  Receive Date: 20210415
  Receipt Date: 20210415
  Transmission Date: 20210717
  Serious: Yes (Death, Life-Threatening, Hospitalization, Other)
  Sender: FDA-Public Use
  Company Number: FR-CLINIGEN GROUP PLC/ CLINIGEN HEALTHCARE LTD-FR-CLGN-21-0013194

PATIENT
  Age: 26 Year
  Sex: Female

DRUGS (9)
  1. CEFOTAXIME [Suspect]
     Active Substance: CEFOTAXIME SODIUM
     Indication: ANTIBIOTIC PROPHYLAXIS
  2. MESALAZINE [Suspect]
     Active Substance: MESALAMINE
     Indication: COLITIS
  3. FOSCAVIR [Suspect]
     Active Substance: FOSCARNET SODIUM
     Indication: DISSEMINATED CYTOMEGALOVIRAL INFECTION
  4. SULFAMETHOXAZOLE;TRIMETHOPRIM [Suspect]
     Active Substance: SULFAMETHOXAZOLE\TRIMETHOPRIM
     Indication: ANTIBIOTIC PROPHYLAXIS
  5. VALACICLOVIR [Suspect]
     Active Substance: VALACYCLOVIR HYDROCHLORIDE
     Indication: ANTIVIRAL PROPHYLAXIS
  6. MESALAZINE [Suspect]
     Active Substance: MESALAMINE
     Indication: ENTEROCOLITIS HAEMORRHAGIC
  7. GANCICLOVIR. [Suspect]
     Active Substance: GANCICLOVIR
     Indication: DISSEMINATED CYTOMEGALOVIRAL INFECTION
     Dosage: UNK
  8. AZATHIOPRINE. [Suspect]
     Active Substance: AZATHIOPRINE
     Indication: COLITIS
     Dosage: UNK
  9. AZATHIOPRINE. [Suspect]
     Active Substance: AZATHIOPRINE
     Indication: ENTEROCOLITIS HAEMORRHAGIC

REACTIONS (13)
  - Cerebral venous thrombosis [Unknown]
  - Condition aggravated [Unknown]
  - Exposure during pregnancy [Unknown]
  - Cerebral haemorrhage [Unknown]
  - Encephalitis cytomegalovirus [Fatal]
  - Intracranial pressure increased [Unknown]
  - Central nervous system necrosis [Unknown]
  - Hydrocephalus [Unknown]
  - Brain death [Fatal]
  - Headache [Unknown]
  - Hemiparesis [Unknown]
  - Neurological decompensation [Unknown]
  - Brain oedema [Unknown]
